FAERS Safety Report 18649250 (Version 1)
Quarter: 2020Q4

REPORT INFORMATION
  Report Type: Spontaneous
  Country: AU (occurrence: AU)
  Receive Date: 20201222
  Receipt Date: 20201222
  Transmission Date: 20210114
  Serious: No
  Sender: FDA-Public Use
  Company Number: AU-LUPIN PHARMACEUTICALS INC.-2020-06255

PATIENT
  Age: 60 Year
  Sex: Female

DRUGS (3)
  1. LAMOTRIGINE. [Suspect]
     Active Substance: LAMOTRIGINE
     Indication: EPILEPSY
     Dosage: 700 MILLIGRAM, QD (300MG IN THE MORNING AND 400MG AT NIGHT)
     Route: 065
  2. LAMOTRIGINE. [Interacting]
     Active Substance: LAMOTRIGINE
     Dosage: 1000 MILLIGRAM, QD (400 MG IN THE MORNING AND 600 MG IN THE NIGHT)
     Route: 065
  3. LEVETIRACETAM. [Concomitant]
     Active Substance: LEVETIRACETAM
     Indication: EPILEPSY
     Dosage: 3 GRAM, QD (1G IN THE MORNING AND 2G AT NIGHT)
     Route: 065

REACTIONS (4)
  - Impaired quality of life [Recovered/Resolved]
  - Drug ineffective [Unknown]
  - Impaired driving ability [Recovered/Resolved]
  - Drug interaction [Unknown]
